APPROVED DRUG PRODUCT: DONEPEZIL HYDROCHLORIDE
Active Ingredient: DONEPEZIL HYDROCHLORIDE
Strength: 10MG
Dosage Form/Route: TABLET, ORALLY DISINTEGRATING;ORAL
Application: A205269 | Product #002 | TE Code: AB
Applicant: HISUN PHARMACEUTICAL HANGZHOU CO LTD
Approved: Jul 27, 2018 | RLD: No | RS: No | Type: RX